FAERS Safety Report 24244104 (Version 2)
Quarter: 2024Q4

REPORT INFORMATION
  Report Type: Spontaneous
  Country: DE (occurrence: DE)
  Receive Date: 20240823
  Receipt Date: 20241122
  Transmission Date: 20250114
  Serious: Yes (Other)
  Sender: BRISTOL-MYERS SQUIBB COMPANY
  Company Number: DE-BRISTOL-MYERS SQUIBB COMPANY-2024-128402

PATIENT
  Age: 58 Year
  Sex: Male

DRUGS (3)
  1. ELOTUZUMAB [Suspect]
     Active Substance: ELOTUZUMAB
     Indication: Plasma cell myeloma
     Dates: start: 2023
  2. POMALIDOMIDE [Suspect]
     Active Substance: POMALIDOMIDE
     Indication: Plasma cell myeloma
  3. DEXAMETHASONE [Concomitant]
     Active Substance: DEXAMETHASONE
     Indication: Plasma cell myeloma
     Dosage: DOSE : UNAVAILABLE;     FREQ : SEE DESCRIBE EVENT FIELD
     Dates: start: 2023

REACTIONS (4)
  - Plasma cell myeloma [Unknown]
  - Cytopenia [Unknown]
  - Central nervous system lesion [Unknown]
  - Bone lesion [Unknown]

NARRATIVE: CASE EVENT DATE: 20240301
